FAERS Safety Report 6722755-3 (Version None)
Quarter: 2010Q2

REPORT INFORMATION
  Report Type: 
  Country: None (occurrence: None)
  Receive Date: 20100511
  Receipt Date: 20100504
  Transmission Date: 20101027
  Serious: Yes (Life-Threatening, Other)
  Sender: FDA-Public Use
  Company Number: 2010US000535

PATIENT
  Age: 44 Year
  Sex: Female
  Weight: 45 kg

DRUGS (6)
  1. AMBISOME [Suspect]
     Indication: ZYGOMYCOSIS
     Dosage: 300 /D, IV NOS ; 3 MG/KG, UID/QD, IV NOS ; 10 MG/KG, UID/QD, IV NOS
     Route: 042
     Dates: start: 20100112
  2. AMBISOME [Suspect]
     Indication: ZYGOMYCOSIS
     Dosage: 300 /D, IV NOS ; 3 MG/KG, UID/QD, IV NOS ; 10 MG/KG, UID/QD, IV NOS
     Route: 042
     Dates: start: 20100126
  3. TRAMADOL HCL [Suspect]
     Indication: HEADACHE
     Dosage: 50, /D, ORAL
     Route: 048
     Dates: start: 20100117, end: 20100118
  4. ACETAMINOPHEN [Concomitant]
  5. ISOPTIN [Concomitant]
  6. HYPERIUM (RILMENIDINE PHOSPHATE) [Concomitant]

REACTIONS (19)
  - ACUTE RESPIRATORY FAILURE [None]
  - ASPERGILLOSIS [None]
  - BLOOD PRESSURE INCREASED [None]
  - BLOOD SODIUM DECREASED [None]
  - CELL DEATH [None]
  - COMA [None]
  - DISTURBANCE IN ATTENTION [None]
  - GENERAL PHYSICAL HEALTH DETERIORATION [None]
  - HAEMOGLOBIN DECREASED [None]
  - HEART RATE INCREASED [None]
  - HYPERCAPNIA [None]
  - HYPERKALAEMIA [None]
  - NAUSEA [None]
  - OEDEMA PERIPHERAL [None]
  - PAIN IN EXTREMITY [None]
  - RENAL FAILURE ACUTE [None]
  - STREPTOCOCCAL INFECTION [None]
  - VENOUS THROMBOSIS LIMB [None]
  - VOMITING [None]
